FAERS Safety Report 25706077 (Version 1)
Quarter: 2025Q3

REPORT INFORMATION
  Report Type: Report from Study
  Country: US (occurrence: US)
  Receive Date: 20250820
  Receipt Date: 20250820
  Transmission Date: 20251021
  Serious: Yes (Hospitalization)
  Sender: TAKEDA
  Company Number: US-TAKEDA-2025TUS049364

PATIENT
  Sex: Female
  Weight: 52.2 kg

DRUGS (9)
  1. FRUQUINTINIB [Suspect]
     Active Substance: FRUQUINTINIB
     Indication: Rectal cancer
  2. FRUQUINTINIB [Suspect]
     Active Substance: FRUQUINTINIB
     Indication: Colon cancer
  3. FRUQUINTINIB [Suspect]
     Active Substance: FRUQUINTINIB
  4. FRUQUINTINIB [Suspect]
     Active Substance: FRUQUINTINIB
  5. LEVOTHYROXINE [Concomitant]
     Active Substance: LEVOTHYROXINE
     Indication: Prophylaxis
  6. LACTASE [Concomitant]
     Active Substance: LACTASE
     Indication: Lactose intolerance
  7. CHLORTHALIDONE [Concomitant]
     Active Substance: CHLORTHALIDONE
     Indication: Blood pressure measurement
  8. LOSARTAN [Concomitant]
     Active Substance: LOSARTAN
     Indication: Blood pressure measurement
  9. METOPROLOL [Concomitant]
     Active Substance: METOPROLOL
     Indication: Blood pressure measurement

REACTIONS (16)
  - Skin exfoliation [Unknown]
  - Skin fragility [Unknown]
  - Dry skin [Unknown]
  - Somnolence [Unknown]
  - Nausea [Unknown]
  - Bowel movement irregularity [Unknown]
  - Hypoacusis [Unknown]
  - Speech disorder [Unknown]
  - Product dose omission in error [Unknown]
  - Pruritus [Unknown]
  - Hypersensitivity [Recovering/Resolving]
  - Constipation [Unknown]
  - Stress [Unknown]
  - Dizziness [Unknown]
  - Balance disorder [Unknown]
  - Incorrect dose administered [Unknown]
